FAERS Safety Report 17795001 (Version 1)
Quarter: 2020Q2

REPORT INFORMATION
  Report Type: Report from Study
  Country: None (occurrence: US)
  Receive Date: 20200516
  Receipt Date: 20200516
  Transmission Date: 20200714
  Serious: Yes (Other)
  Sender: FDA-Public Use
  Company Number: US-ABBVIE-20K-163-3375271-00

PATIENT
  Sex: Female

DRUGS (1)
  1. HUMIRA [Suspect]
     Active Substance: ADALIMUMAB
     Indication: CROHN^S DISEASE
     Route: 058

REACTIONS (5)
  - Therapeutic product effect decreased [Not Recovered/Not Resolved]
  - Post procedural complication [Unknown]
  - Colectomy [Unknown]
  - Pouchitis [Not Recovered/Not Resolved]
  - Drug specific antibody present [Unknown]
